FAERS Safety Report 14972484 (Version 1)
Quarter: 2018Q2

REPORT INFORMATION
  Report Type: Spontaneous
  Country: ES (occurrence: ES)
  Receive Date: 20180605
  Receipt Date: 20180605
  Transmission Date: 20180711
  Serious: Yes (Other)
  Sender: FDA-Public Use
  Company Number: ES-AMGEN-ESPCT2018073195

PATIENT
  Age: 78 Year
  Sex: Male

DRUGS (10)
  1. FENTANYL. [Suspect]
     Active Substance: FENTANYL
     Dosage: 100 MCG, UNK
     Route: 060
  2. CARBOPLATIN W/GEMCITABINE [Suspect]
     Active Substance: CARBOPLATIN\GEMCITABINE
     Indication: LUNG NEOPLASM MALIGNANT
     Dosage: UNKNOWN, DAYS 1 AND 8, EVERY 21 DAYS
     Route: 065
     Dates: start: 201801
  3. FENTANYL. [Suspect]
     Active Substance: FENTANYL
     Dosage: 200 MCG, UNK
     Route: 060
  4. DECADRON [Suspect]
     Active Substance: DEXAMETHASONE
     Indication: PAIN
     Dosage: 4 MCG, EVERY 12 HOURS
     Route: 065
     Dates: start: 201804
  5. FENTANYL. [Suspect]
     Active Substance: FENTANYL
     Indication: BREAKTHROUGH PAIN
     Dosage: 4 MCG, EVERY 72 HOURS
     Route: 065
     Dates: start: 201804
  6. FENTANYL. [Suspect]
     Active Substance: FENTANYL
     Dosage: 75 MCG, EVERY 72 HOURS
     Route: 065
  7. FENTANYL. [Suspect]
     Active Substance: FENTANYL
     Indication: PAIN
     Dosage: 150 MCG, EVERY 72 HOURS
     Route: 065
     Dates: start: 201804
  8. XGEVA [Suspect]
     Active Substance: DENOSUMAB
     Indication: LUNG NEOPLASM MALIGNANT
     Dosage: UNK, EVERY 28 DAYS
     Route: 065
     Dates: start: 201801
  9. DECADRON [Suspect]
     Active Substance: DEXAMETHASONE
     Dosage: 4 MG EVERY 12 HOURS
     Route: 065
     Dates: start: 2018
  10. FENTANYL. [Suspect]
     Active Substance: FENTANYL
     Dosage: 100 MCG, EVERY 72 HOURS
     Route: 065
     Dates: start: 2018

REACTIONS (8)
  - Renal impairment [Unknown]
  - Overdose [Unknown]
  - Nausea [Unknown]
  - Depressed level of consciousness [Unknown]
  - Neutropenia [Unknown]
  - Anaemia [Unknown]
  - Somnolence [Unknown]
  - Vomiting [Unknown]

NARRATIVE: CASE EVENT DATE: 201804
